FAERS Safety Report 22953085 (Version 4)
Quarter: 2025Q2

REPORT INFORMATION
  Report Type: Spontaneous
  Country: IT (occurrence: IT)
  Receive Date: 20230918
  Receipt Date: 20250408
  Transmission Date: 20250717
  Serious: Yes (Life-Threatening, Hospitalization)
  Sender: ACCORD
  Company Number: None

PATIENT
  Age: 66 Year
  Sex: Female
  Weight: 80 kg

DRUGS (5)
  1. RAMIPRIL [Suspect]
     Active Substance: RAMIPRIL
     Indication: Hypertension
     Dosage: NOT KNOWN
  2. BISOPROLOL [Suspect]
     Active Substance: BISOPROLOL
     Indication: Atrial fibrillation
     Dosage: 2.5 MG 1 TABLET/DAY.
  3. ALDACTONE [Suspect]
     Active Substance: SPIRONOLACTONE
     Indication: Hepatic cirrhosis
  4. DIGOXIN [Suspect]
     Active Substance: DIGOXIN
     Indication: Atrial fibrillation
  5. DIGOXIN [Suspect]
     Active Substance: DIGOXIN
     Indication: Atrial fibrillation
     Dosage: 0.250 MG 1 TABLET FROM MONDAY TO FRIDAY AND 0.125 MG SATURDAY AND SUNDAY.

REACTIONS (3)
  - Anuria [Unknown]
  - Toxicity to various agents [Recovering/Resolving]
  - BRASH syndrome [Recovering/Resolving]

NARRATIVE: CASE EVENT DATE: 20230726
